FAERS Safety Report 4762200-0 (Version None)
Quarter: 2005Q3

REPORT INFORMATION
  Report Type: 
  Country: None (occurrence: None)
  Receive Date: 20050906
  Receipt Date: 20050906
  Transmission Date: 20060218
  Serious: Yes (Other)
  Sender: FDA-Public Use
  Company Number: None

PATIENT
  Sex: Female
  Weight: 77.1115 kg

DRUGS (2)
  1. NAMENDA [Suspect]
     Indication: COGNITIVE DISORDER
     Dosage: 10MG  BID  PO
     Route: 048
     Dates: start: 20050217, end: 20050626
  2. NAMENDA [Suspect]
     Indication: COGNITIVE DISORDER
     Dosage: 10MG   BID   PO
     Route: 048
     Dates: start: 20050813, end: 20050912

REACTIONS (12)
  - ARTHRALGIA [None]
  - BACK PAIN [None]
  - DYSURIA [None]
  - HYPOAESTHESIA [None]
  - HYPOAESTHESIA ORAL [None]
  - JOINT STIFFNESS [None]
  - LACRIMAL DISORDER [None]
  - MUSCULOSKELETAL STIFFNESS [None]
  - MYALGIA [None]
  - PHARYNGEAL HYPOAESTHESIA [None]
  - SYNCOPE [None]
  - VERTIGO [None]
